FAERS Safety Report 5659642-8 (Version None)
Quarter: 2008Q1

REPORT INFORMATION
  Report Type: 
  Country: None (occurrence: None)
  Receive Date: 20080310
  Receipt Date: 20080310
  Transmission Date: 20080703
  Serious: Yes (Hospitalization)
  Sender: FDA-Public Use
  Company Number: None

PATIENT
  Age: 85 Year
  Sex: Female
  Weight: 54.4316 kg

DRUGS (1)
  1. HYDRALAZINE HCL [Suspect]
     Indication: HYPERTENSION
     Dosage: 125MG BID PO
     Route: 048

REACTIONS (2)
  - LUPUS-LIKE SYNDROME [None]
  - PLEURAL EFFUSION [None]
